FAERS Safety Report 4413229-3 (Version None)
Quarter: 2004Q3

REPORT INFORMATION
  Report Type: 
  Country: None (occurrence: None)
  Receive Date: 20040802
  Receipt Date: 20040729
  Transmission Date: 20050211
  Serious: Yes (Life-Threatening, Hospitalization, Other)
  Sender: FDA-Public Use
  Company Number: PHRM2004FR02468

PATIENT
  Age: 67 Year
  Sex: Male

DRUGS (1)
  1. VOLTAREN [Suspect]
     Route: 048
     Dates: end: 20031124

REACTIONS (9)
  - ABDOMINAL DISTENSION [None]
  - ELECTROLYTE IMBALANCE [None]
  - GASTROINTESTINAL HAEMORRHAGE [None]
  - HYPOKALAEMIA [None]
  - LARGE INTESTINAL ULCER [None]
  - MEGACOLON ACQUIRED [None]
  - RECTAL HAEMORRHAGE [None]
  - RENAL FAILURE ACUTE [None]
  - VOLVULUS OF BOWEL [None]
